FAERS Safety Report 5288816-3 (Version None)
Quarter: 2007Q2

REPORT INFORMATION
  Report Type: 
  Country: None (occurrence: None)
  Receive Date: 20070405
  Receipt Date: 20070327
  Transmission Date: 20071010
  Serious: Yes (Hospitalization)
  Sender: FDA-Public Use
  Company Number: DE-ABBOTT-07P-062-0362269-00

PATIENT
  Sex: Female
  Weight: 54 kg

DRUGS (2)
  1. KLACID PRO [Suspect]
     Indication: SINUSITIS
     Route: 048
     Dates: start: 20070306, end: 20070310
  2. KLACID PRO [Suspect]
     Indication: TONSILLITIS

REACTIONS (1)
  - DIARRHOEA HAEMORRHAGIC [None]
